FAERS Safety Report 8391027-6 (Version None)
Quarter: 2012Q2

REPORT INFORMATION
  Report Type: 
  Country: None (occurrence: None)
  Receive Date: 20120529
  Receipt Date: 20120518
  Transmission Date: 20120825
  Serious: Yes (Other)
  Sender: FDA-Public Use
  Company Number: US-JNJFOC-20120516626

PATIENT
  Sex: Female
  Weight: 87.54 kg

DRUGS (7)
  1. ELMIRON [Suspect]
     Indication: CYSTITIS INTERSTITIAL
     Route: 048
     Dates: start: 20120501
  2. ELMIRON [Suspect]
     Route: 048
     Dates: start: 20101001, end: 20101101
  3. CHLORTHALIDONE [Concomitant]
     Indication: BLOOD PRESSURE
     Route: 048
  4. ELMIRON [Suspect]
     Dosage: ONCE A DAY OR UPTO THRICE A DAY AS NEEDED
     Route: 048
     Dates: start: 20100601, end: 20101001
  5. ELMIRON [Suspect]
     Route: 048
     Dates: start: 20110201, end: 20110101
  6. OMEPRAZOLE [Concomitant]
     Indication: GASTRIC DISORDER
     Route: 048
  7. NAPROXEN [Concomitant]
     Indication: ARTHRITIS
     Dosage: AS NECESSARY
     Route: 048

REACTIONS (4)
  - BREAST LUMP REMOVAL [None]
  - EXPIRED DRUG ADMINISTERED [None]
  - BREAST CANCER [None]
  - DRUG INEFFECTIVE [None]
